FAERS Safety Report 8543401-2 (Version None)
Quarter: 2012Q2

REPORT INFORMATION
  Report Type: 
  Country: None (occurrence: None)
  Receive Date: 20120412
  Receipt Date: 20090216
  Transmission Date: 20120825
  Serious: Yes (Other)
  Sender: FDA-Public Use
  Company Number: PHEH2006US12371

PATIENT
  Age: 67 Year
  Sex: Female
  Weight: 69.8 kg

DRUGS (3)
  1. CARBOPLATIN [Concomitant]
  2. TAXOL [Concomitant]
  3. AREDIA [Suspect]
     Indication: BONE DENSITY DECREASED
     Route: 041

REACTIONS (9)
  - FACIAL PAIN [None]
  - INJURY [None]
  - NECK PAIN [None]
  - ARTHRALGIA [None]
  - PAIN [None]
  - ANXIETY [None]
  - OSTEONECROSIS [None]
  - OSTEOLYSIS [None]
  - PHYSICAL DISABILITY [None]
